FAERS Safety Report 25481003 (Version 1)
Quarter: 2025Q2

REPORT INFORMATION
  Report Type: Report from Study
  Country: DE (occurrence: DE)
  Receive Date: 20250625
  Receipt Date: 20250625
  Transmission Date: 20250717
  Serious: Yes (Other)
  Sender: TAKEDA
  Company Number: DE-TAKEDA-2025TUS057477

PATIENT
  Age: 64 Year
  Sex: Male

DRUGS (1)
  1. FRUQUINTINIB [Suspect]
     Active Substance: FRUQUINTINIB
     Indication: Colorectal cancer metastatic

REACTIONS (2)
  - Cardiotoxicity [Unknown]
  - Cardiac failure [Unknown]
